FAERS Safety Report 8517594-7 (Version None)
Quarter: 2012Q3

REPORT INFORMATION
  Report Type: 
  Country: None (occurrence: None)
  Receive Date: 20120718
  Receipt Date: 20120625
  Transmission Date: 20120928
  Serious: No
  Sender: FDA-Public Use
  Company Number: US-ROXANE LABORATORIES, INC.-2012-RO-01485RO

PATIENT
  Sex: Female

DRUGS (1)
  1. PREDNISONE [Suspect]

REACTIONS (6)
  - PAIN IN EXTREMITY [None]
  - DIZZINESS [None]
  - ARTHRALGIA [None]
  - PAIN [None]
  - BACK PAIN [None]
  - MALAISE [None]
